FAERS Safety Report 24309960 (Version 2)
Quarter: 2024Q3

REPORT INFORMATION
  Report Type: Spontaneous
  Country: US (occurrence: US)
  Receive Date: 20240912
  Receipt Date: 20240923
  Transmission Date: 20241016
  Serious: Yes (Hospitalization)
  Sender: HETERO
  Company Number: US-HETERO-HET2024US02952

PATIENT

DRUGS (1)
  1. VIGABATRIN [Suspect]
     Active Substance: VIGABATRIN
     Indication: Product used for unknown indication
     Dosage: 2000 MILLIGRAM
     Route: 048

REACTIONS (1)
  - Hospitalisation [Unknown]
